FAERS Safety Report 9173348 (Version 1)
Quarter: 2013Q1

REPORT INFORMATION
  Report Type: Spontaneous
  Country: US (occurrence: None)
  Receive Date: 20130319
  Receipt Date: 20130319
  Transmission Date: 20140127
  Serious: Yes (Other)
  Sender: FDA-Public Use
  Company Number: None

PATIENT
  Age: 45 Year
  Sex: Female
  Weight: 83.92 kg

DRUGS (1)
  1. ADVIL [Suspect]
     Indication: PAIN IN EXTREMITY
     Route: 048
     Dates: start: 20130318, end: 20130318

REACTIONS (6)
  - Muscle spasms [None]
  - Vomiting [None]
  - Abdominal pain [None]
  - Product container issue [None]
  - Feeling abnormal [None]
  - Impaired work ability [None]
